FAERS Safety Report 21770175 (Version 1)
Quarter: 2022Q4

REPORT INFORMATION
  Report Type: Spontaneous
  Country: US (occurrence: US)
  Receive Date: 20221223
  Receipt Date: 20221223
  Transmission Date: 20230113
  Serious: No
  Sender: FDA-Public Use
  Company Number: US-SA-SAC20221221000155

PATIENT
  Sex: Female

DRUGS (13)
  1. AUBAGIO [Suspect]
     Active Substance: TERIFLUNOMIDE
     Dosage: 7 MG, QD
     Route: 048
  2. ALBUTEROL SULFATE [Concomitant]
     Active Substance: ALBUTEROL SULFATE
  3. DICLOFENAC [Concomitant]
     Active Substance: DICLOFENAC
  4. GABAPENTIN [Concomitant]
     Active Substance: GABAPENTIN
  5. LAMICTAL [Concomitant]
     Active Substance: LAMOTRIGINE
  6. LASIX [Concomitant]
     Active Substance: FUROSEMIDE
  7. LECITHIN [GLYCINE MAX EXTRACT] [Concomitant]
  8. CRANBERRY PLUS [ASCORBIC ACID;VACCINIUM MACROCARPON] [Concomitant]
  9. MAGNESIUM CARBONATE [Concomitant]
     Active Substance: MAGNESIUM CARBONATE
  10. VITAMINS NOS [Concomitant]
     Active Substance: VITAMINS
  11. POTASSIUM [Concomitant]
     Active Substance: POTASSIUM
  12. OMEPRAZOLE [Concomitant]
     Active Substance: OMEPRAZOLE
  13. VITAMIN D NOS [Concomitant]
     Active Substance: VITAMIN D NOS

REACTIONS (6)
  - Dry mouth [Unknown]
  - Dry eye [Unknown]
  - Vision blurred [Unknown]
  - Depression [Unknown]
  - Central nervous system lesion [Unknown]
  - Hiatus hernia [Unknown]
